FAERS Safety Report 18136246 (Version 2)
Quarter: 2020Q3

REPORT INFORMATION
  Report Type: Report from Study
  Country: US (occurrence: US)
  Receive Date: 20200811
  Receipt Date: 20200817
  Transmission Date: 20201103
  Serious: Yes (Death, Hospitalization, Other)
  Sender: FDA-Public Use
  Company Number: NVSC2020US221541

PATIENT
  Age: 63 Year
  Sex: Male
  Weight: 70.2 kg

DRUGS (1)
  1. HYCAMTIN [Suspect]
     Active Substance: TOPOTECAN HYDROCHLORIDE
     Indication: PRODUCT USED FOR UNKNOWN INDICATION
     Dosage: UNK
     Route: 065
     Dates: start: 201904, end: 202003

REACTIONS (14)
  - Cardiac arrest [Fatal]
  - Peripheral vascular disorder [Unknown]
  - Lung neoplasm malignant [Fatal]
  - Disease progression [Unknown]
  - Anaemia [Fatal]
  - Dyspnoea [Unknown]
  - Chronic respiratory failure [Fatal]
  - Hypoxia [Unknown]
  - Pancytopenia [Unknown]
  - N-terminal prohormone brain natriuretic peptide increased [Unknown]
  - Myocardial infarction [Fatal]
  - Blood glucose decreased [Unknown]
  - Troponin increased [Unknown]
  - Ventricular fibrillation [Unknown]

NARRATIVE: CASE EVENT DATE: 20200330
